FAERS Safety Report 20480456 (Version 1)
Quarter: 2022Q1

REPORT INFORMATION
  Report Type: Spontaneous
  Country: US (occurrence: US)
  Receive Date: 20220216
  Receipt Date: 20220216
  Transmission Date: 20220424
  Serious: No
  Sender: FDA-Public Use
  Company Number: US-GW PHARMA-202202USGW00680

PATIENT
  Sex: Female
  Weight: 46.259 kg

DRUGS (1)
  1. EPIDIOLEX [Suspect]
     Active Substance: CANNABIDIOL
     Indication: Lennox-Gastaut syndrome
     Dosage: 15.13 MG/KG/DAY, 350 MILLIGRAM, BID
     Route: 048
     Dates: start: 201901

REACTIONS (1)
  - Weight increased [Unknown]
